FAERS Safety Report 22240179 (Version 9)
Quarter: 2023Q4

REPORT INFORMATION
  Report Type: Report from Study
  Country: CN (occurrence: CN)
  Receive Date: 20230421
  Receipt Date: 20231130
  Transmission Date: 20240110
  Serious: Yes (Hospitalization)
  Sender: FDA-Public Use
  Company Number: CN-ANTENGENE-20230401601

PATIENT
  Age: 23 Year
  Sex: Female
  Weight: 50 kg

DRUGS (15)
  1. SELINEXOR [Suspect]
     Active Substance: SELINEXOR
     Indication: Diffuse large B-cell lymphoma
     Dosage: 80 MG, WEEKLY
     Route: 048
     Dates: start: 20220929, end: 20221110
  2. SELINEXOR [Suspect]
     Active Substance: SELINEXOR
     Dosage: 60 MG, WEEKLY
     Route: 048
     Dates: start: 20221118, end: 20221215
  3. SELINEXOR [Suspect]
     Active Substance: SELINEXOR
     Dosage: 60 MG, WEEKLY
     Route: 048
     Dates: start: 20230314, end: 20230328
  4. SELINEXOR [Suspect]
     Active Substance: SELINEXOR
     Dosage: 60 MG, WEEKLY
     Route: 048
     Dates: start: 20230614, end: 20230628
  5. SELINEXOR [Suspect]
     Active Substance: SELINEXOR
     Dosage: 60 MG, WEEKLY
     Route: 048
     Dates: start: 20230810, end: 20230824
  6. LENALIDOMIDE [Suspect]
     Active Substance: LENALIDOMIDE
     Indication: Diffuse large B-cell lymphoma
     Dosage: 25 MG, CYCLIC
     Route: 048
     Dates: start: 20220929, end: 20230102
  7. LENALIDOMIDE [Suspect]
     Active Substance: LENALIDOMIDE
     Dosage: 25 MG, CYCLIC
     Route: 048
     Dates: start: 20230314, end: 20230323
  8. LENALIDOMIDE [Suspect]
     Active Substance: LENALIDOMIDE
     Dosage: 15 MG, CYCLIC
     Route: 048
     Dates: start: 20230614, end: 20230623
  9. LENALIDOMIDE [Suspect]
     Active Substance: LENALIDOMIDE
     Dosage: 15 MG, CYCLIC
     Route: 048
     Dates: start: 20230810, end: 20230819
  10. RITUXIMAB [Suspect]
     Active Substance: RITUXIMAB
     Indication: Diffuse large B-cell lymphoma
     Dosage: 548 MG, CYCLIC
     Route: 042
     Dates: start: 20220929, end: 20220929
  11. RITUXIMAB [Suspect]
     Active Substance: RITUXIMAB
     Dosage: 548 MG, CYCLIC
     Route: 042
     Dates: start: 20221101, end: 20221101
  12. RITUXIMAB [Suspect]
     Active Substance: RITUXIMAB
     Dosage: 548 MG, CYCLIC
     Route: 042
     Dates: start: 20221201, end: 20221201
  13. RITUXIMAB [Suspect]
     Active Substance: RITUXIMAB
     Dosage: 548 MG, CYCLIC
     Route: 042
     Dates: start: 20230314, end: 20230314
  14. RITUXIMAB [Suspect]
     Active Substance: RITUXIMAB
     Dosage: 548 MG, CYCLIC
     Route: 042
     Dates: start: 20230614, end: 20230614
  15. RITUXIMAB [Suspect]
     Active Substance: RITUXIMAB
     Dosage: 548 MG, CYCLIC
     Route: 042
     Dates: start: 20230810, end: 20230810

REACTIONS (3)
  - Pneumonia [Recovered/Resolved]
  - Pneumonia [Recovered/Resolved]
  - Pneumonia [Recovered/Resolved]

NARRATIVE: CASE EVENT DATE: 20230411
